FAERS Safety Report 5019808-7 (Version None)
Quarter: 2006Q2

REPORT INFORMATION
  Report Type: 
  Country: None (occurrence: None)
  Receive Date: 20060607
  Receipt Date: 20060602
  Transmission Date: 20061013
  Serious: Yes (Other)
  Sender: FDA-Public Use
  Company Number: PHEH2006US07215

PATIENT
  Age: 76 Year
  Sex: Female
  Weight: 61.224 kg

DRUGS (2)
  1. ENABLEX [Suspect]
     Dosage: 15 MG, UNK
     Route: 048
     Dates: start: 20060530, end: 20060531
  2. HYDROCHLOROTHIAZIDE [Concomitant]

REACTIONS (3)
  - DYSPHAGIA [None]
  - FEELING ABNORMAL [None]
  - PHARYNGEAL OEDEMA [None]
